FAERS Safety Report 18398966 (Version 1)
Quarter: 2020Q4

REPORT INFORMATION
  Report Type: Spontaneous
  Country: US (occurrence: US)
  Receive Date: 20201019
  Receipt Date: 20201019
  Transmission Date: 20210114
  Serious: Yes (Other)
  Sender: FDA-Public Use
  Company Number: None

PATIENT
  Age: 64 Year
  Sex: Male
  Weight: 157 kg

DRUGS (8)
  1. DEXOMETHORPHAN GUAIFENESIN [Concomitant]
     Dates: start: 20201014, end: 20201018
  2. REMDESIVIR. [Suspect]
     Active Substance: REMDESIVIR
     Indication: COVID-19
     Route: 042
     Dates: start: 20201015, end: 20201016
  3. REMDESIVIR. [Suspect]
     Active Substance: REMDESIVIR
     Indication: COVID-19
     Route: 042
     Dates: start: 20201014, end: 20201014
  4. METHYLPREDNISOLONE. [Concomitant]
     Active Substance: METHYLPREDNISOLONE
     Dates: start: 20201014, end: 20201018
  5. MELATONIN [Concomitant]
     Active Substance: MELATONIN
     Dates: start: 20201014, end: 20201018
  6. MONTELUKAST [Concomitant]
     Active Substance: MONTELUKAST SODIUM
     Dates: start: 20201014, end: 20201018
  7. ENOXAPARIN [Concomitant]
     Active Substance: ENOXAPARIN
     Dates: start: 20201014, end: 20201015
  8. ZINC SULFATE. [Concomitant]
     Active Substance: ZINC SULFATE
     Dates: start: 20201014, end: 20201018

REACTIONS (2)
  - Therapy cessation [None]
  - Haematuria [None]

NARRATIVE: CASE EVENT DATE: 20201015
